FAERS Safety Report 7226570-6 (Version None)
Quarter: 2011Q1

REPORT INFORMATION
  Report Type: 
  Country: None (occurrence: None)
  Receive Date: 20110105
  Receipt Date: 20101220
  Transmission Date: 20110831
  Serious: Yes (Hospitalization)
  Sender: FDA-Public Use
  Company Number: 2007000646

PATIENT
  Age: 74 Year
  Sex: Male
  Weight: 60.3 kg

DRUGS (5)
  1. ERLOTINIB (TABLET) [Suspect]
     Indication: NON-SMALL CELL LUNG CANCER
     Dosage: 150 MG (150 MG, QD), ORAL
     Route: 048
     Dates: start: 20070320
  2. BEVACIZUMAB (INJECTION FOR INFUSION) [Suspect]
     Indication: NON-SMALL CELL LUNG CANCER
     Dosage: 900 MG (900 MG, Q3W), INTRAVENOUS
     Route: 042
     Dates: start: 20070320
  3. DIGOXIN [Concomitant]
  4. PRILOSEC (OMPERAZOLE) [Concomitant]
  5. BEVACIZUMAB (INJECTION FOR INFUSION) [Suspect]

REACTIONS (1)
  - PANCREATITIS ACUTE [None]
